FAERS Safety Report 22344272 (Version 1)
Quarter: 2023Q2

REPORT INFORMATION
  Report Type: Report from Study
  Country: US (occurrence: US)
  Receive Date: 20230519
  Receipt Date: 20230519
  Transmission Date: 20230722
  Serious: No
  Sender: FDA-Public Use
  Company Number: US-002147023-NVSC2023US110949

PATIENT
  Sex: Female

DRUGS (1)
  1. CYCLOSPORINE [Suspect]
     Active Substance: CYCLOSPORINE
     Indication: Psoriasis
     Dosage: UNK
     Route: 065

REACTIONS (8)
  - Rash pruritic [Unknown]
  - Streptococcal infection [Unknown]
  - Guttate psoriasis [Unknown]
  - Rash papular [Unknown]
  - Skin plaque [Unknown]
  - Skin exfoliation [Unknown]
  - Erythema [Recovered/Resolved]
  - Drug ineffective [Unknown]
